FAERS Safety Report 14959659 (Version 1)
Quarter: 2018Q2

REPORT INFORMATION
  Report Type: Spontaneous
  Country: US (occurrence: US)
  Receive Date: 20180531
  Receipt Date: 20180531
  Transmission Date: 20180711
  Serious: No
  Sender: FDA-Public Use
  Company Number: US-PERRIGO-18US003181

PATIENT
  Age: 33 Year
  Sex: Female
  Weight: 49.43 kg

DRUGS (4)
  1. BIOTIN [Concomitant]
     Active Substance: BIOTIN
     Indication: HAIR GROWTH ABNORMAL
     Dosage: UNK
     Route: 065
     Dates: start: 2018
  2. MINOXIDIL. [Suspect]
     Active Substance: MINOXIDIL
     Indication: ALOPECIA
     Dosage: 1/2 TO 1 CAPFUL, QD
     Route: 061
     Dates: start: 20180226
  3. OVACE [Concomitant]
     Active Substance: SULFACETAMIDE SODIUM
     Indication: ACNE
     Dosage: UNK
     Route: 065
     Dates: start: 201802, end: 201803
  4. PRENATAL VITAMINS                  /07499601/ [Concomitant]
     Active Substance: VITAMINS
     Indication: SUPPLEMENTATION THERAPY
     Dosage: UNK
     Route: 065
     Dates: start: 2018

REACTIONS (4)
  - Alopecia [Recovering/Resolving]
  - Application site pruritus [Recovering/Resolving]
  - Incorrect dose administered [Unknown]
  - Application site acne [Recovering/Resolving]

NARRATIVE: CASE EVENT DATE: 20180226
